FAERS Safety Report 6896621-7 (Version None)
Quarter: 2010Q3

REPORT INFORMATION
  Report Type: 
  Country: None (occurrence: None)
  Receive Date: 20100802
  Receipt Date: 20070118
  Transmission Date: 20110219
  Serious: No
  Sender: FDA-Public Use
  Company Number: US-PFIZER INC-2007006734

PATIENT
  Age: 46 Year
  Sex: Male
  Weight: 74.84 kg

DRUGS (2)
  1. LYRICA [Suspect]
     Indication: FIBROMYALGIA
     Dates: start: 20070117
  2. WELLBUTRIN [Concomitant]

REACTIONS (1)
  - FEELING ABNORMAL [None]
